FAERS Safety Report 23808068 (Version 2)
Quarter: 2024Q2

REPORT INFORMATION
  Report Type: Spontaneous
  Country: IT (occurrence: IT)
  Receive Date: 20240502
  Receipt Date: 20240524
  Transmission Date: 20240715
  Serious: Yes (Death, Hospitalization)
  Sender: FDA-Public Use
  Company Number: IT-TEVA-VS-3190112

PATIENT
  Age: 57 Year
  Sex: Female

DRUGS (4)
  1. PACLITAXEL [Suspect]
     Active Substance: PACLITAXEL
     Indication: Breast angiosarcoma
     Dosage: 14 CYCLES
     Route: 065
     Dates: start: 202202, end: 202301
  2. FEMARA [Concomitant]
     Active Substance: LETROZOLE
     Indication: Breast angiosarcoma
     Route: 065
  3. BLEOMYCIN [Suspect]
     Active Substance: BLEOMYCIN SULFATE
     Indication: Breast angiosarcoma
     Route: 050
  4. GEMCITABINE [Suspect]
     Active Substance: GEMCITABINE
     Indication: Breast angiosarcoma
     Route: 065

REACTIONS (3)
  - Drug ineffective [Fatal]
  - Drug intolerance [Unknown]
  - Rash [Unknown]
